FAERS Safety Report 8188090-4 (Version None)
Quarter: 2012Q1

REPORT INFORMATION
  Report Type: 
  Country: None (occurrence: None)
  Receive Date: 20120306
  Receipt Date: 20120305
  Transmission Date: 20120608
  Serious: No
  Sender: FDA-Public Use
  Company Number: US-PFIZER INC-2012014068

PATIENT
  Sex: Female
  Weight: 44.898 kg

DRUGS (7)
  1. CHANTIX [Suspect]
     Indication: SMOKING CESSATION THERAPY
     Dosage: 0.5 MG, 2X/DAY
     Dates: start: 20120101, end: 20120101
  2. GABAPENTIN [Concomitant]
     Indication: PERIPHERAL NERVE INJURY
     Dosage: UNK
  3. POTASSIUM [Concomitant]
     Indication: BLOOD POTASSIUM DECREASED
     Dosage: UNK
  4. CHANTIX [Suspect]
     Dosage: UNK
     Dates: start: 20120101
  5. LOVASTATIN [Concomitant]
     Dosage: UNK
  6. GABAPENTIN [Concomitant]
     Indication: NERVE INJURY
  7. METHIMAZOLE [Concomitant]
     Dosage: UNK

REACTIONS (1)
  - HYPERSOMNIA [None]
